FAERS Safety Report 8273250-4 (Version None)
Quarter: 2012Q2

REPORT INFORMATION
  Report Type: 
  Country: None (occurrence: None)
  Receive Date: 20120411
  Receipt Date: 20120404
  Transmission Date: 20120825
  Serious: Yes (Other)
  Sender: FDA-Public Use
  Company Number: US-PFIZER INC-2012039710

PATIENT
  Sex: Female
  Weight: 90.703 kg

DRUGS (8)
  1. CLARITIN [Concomitant]
     Dosage: 10 MG, 1X/DAY
  2. LEVOXYL [Suspect]
     Indication: HORMONE THERAPY
     Dosage: 150 MCG DAILY
     Route: 048
  3. LEVOXYL [Suspect]
     Dosage: 125 MCG DAILY
     Dates: start: 20110601
  4. ACYCLOVIR [Concomitant]
     Dosage: 5 %, AS NEEDED
  5. ACYCLOVIR [Concomitant]
     Dosage: 200 MG, AS NEEDED
  6. LEVOXYL [Suspect]
     Dosage: 137 MCG DAILY
  7. TRIAMCINOLONE ACETONIDE [Concomitant]
     Dosage: 0.1 %, AS NEEDED
  8. ALBUTEROL SULFATE [Concomitant]
     Dosage: 108 (90 BASE) MCG/ACT

REACTIONS (6)
  - HYPERTHYROIDISM [None]
  - MALAISE [None]
  - HYPERSENSITIVITY [None]
  - ALOPECIA [None]
  - RASH PRURITIC [None]
  - FATIGUE [None]
